FAERS Safety Report 19508313 (Version 2)
Quarter: 2021Q3

REPORT INFORMATION
  Report Type: Report from Study
  Country: None (occurrence: BE)
  Receive Date: 20210708
  Receipt Date: 20210714
  Transmission Date: 20211014
  Serious: Yes (Hospitalization)
  Sender: FDA-Public Use
  Company Number: BE-ABBVIE-21K-013-3980373-00

PATIENT
  Sex: Male

DRUGS (6)
  1. DUODOPA [Suspect]
     Active Substance: CARBIDOPA\LEVODOPA
     Indication: PARKINSON^S DISEASE
     Route: 050
     Dates: start: 20200728, end: 2020
  2. DUODOPA [Suspect]
     Active Substance: CARBIDOPA\LEVODOPA
     Dosage: MD 2.5 ML; CD 3.0 ML/H; ED 1.5 ML DURING 24 HRS; NCD 1.7 ML/H
     Route: 050
     Dates: start: 20201210, end: 20201214
  3. DUODOPA [Suspect]
     Active Substance: CARBIDOPA\LEVODOPA
     Dosage: MD 3 ML; CD 3.0 ML/H; ED 1.0 ML DURING 16 HRS; NCD 1.9 ML/H
     Route: 050
     Dates: start: 20200806, end: 2020
  4. DUODOPA [Suspect]
     Active Substance: CARBIDOPA\LEVODOPA
     Dosage: MD 5.5 ML; CD 3.0 ML/H; ED 0.8 ML DURING 24 HRS; NCD 1.8 ML/H
     Route: 050
     Dates: start: 20210412
  5. STALEVO [Concomitant]
     Active Substance: CARBIDOPA\ENTACAPONE\LEVODOPA
     Indication: PARKINSON^S DISEASE
     Route: 048
  6. DUODOPA [Suspect]
     Active Substance: CARBIDOPA\LEVODOPA
     Dosage: MD 2.5 ML; CD 1.8 ML/H; ED 0.8 ML DURING 16 HRS
     Route: 050
     Dates: start: 2020, end: 20210412

REACTIONS (6)
  - Embedded device [Recovered/Resolved]
  - Nausea [Unknown]
  - Bezoar [Unknown]
  - Gastrointestinal disorder [Unknown]
  - Vomiting [Unknown]
  - Stoma site pain [Unknown]

NARRATIVE: CASE EVENT DATE: 2021
